FAERS Safety Report 4931454-X (Version None)
Quarter: 2006Q1

REPORT INFORMATION
  Report Type: 
  Country: None (occurrence: None)
  Receive Date: 20060303
  Receipt Date: 20060223
  Transmission Date: 20060701
  Serious: Yes (Other)
  Sender: FDA-Public Use
  Company Number: US-KINGPHARMUSA00001-K200600257

PATIENT
  Age: 79 Year
  Sex: Male

DRUGS (8)
  1. ALTACE [Suspect]
     Indication: HYPERTENSION
     Dosage: 10 MG, QD
     Route: 048
     Dates: start: 20051018, end: 20060208
  2. TENOX [Concomitant]
     Dosage: 5 MG, UNK
  3. SIMVASTEROL [Concomitant]
     Dosage: 20 MG, UNK
  4. POLOCARD [Concomitant]
     Dosage: 150 MG, UNK
  5. MILURIT [Concomitant]
     Dosage: 100 MG, UNK
  6. AGAPURIN [Concomitant]
     Dosage: 400 MG, UNK
  7. HUMALOG MIX 50 [Concomitant]
     Dosage: 24+28 U
  8. HUMALOG [Concomitant]
     Dosage: 8 U, UNK

REACTIONS (1)
  - ALOPECIA AREATA [None]
